FAERS Safety Report 4560567-X (Version None)
Quarter: 2005Q1

REPORT INFORMATION
  Report Type: 
  Country: None (occurrence: None)
  Receive Date: 20050125
  Receipt Date: 20050113
  Transmission Date: 20050727
  Serious: Yes (Hospitalization, Other)
  Sender: FDA-Public Use
  Company Number: PHRM2005FR00545

PATIENT
  Age: 72 Year
  Sex: Female

DRUGS (5)
  1. AUGMENTIN '125' [Suspect]
     Indication: BRONCHITIS ACUTE
     Route: 048
     Dates: start: 20041010, end: 20041026
  2. EFFEXOR [Suspect]
     Indication: DYSTHYMIC DISORDER
     Dosage: 37.5 MG, BID
     Route: 048
  3. XANAX [Suspect]
     Indication: DYSTHYMIC DISORDER
     Dosage: 0.25 MG, QD
     Route: 048
  4. NISISCO [Suspect]
     Indication: HYPERTENSION
     Route: 048
  5. PRAVASTATIN SODIUM [Suspect]
     Indication: HYPERCHOLESTEROLAEMIA
     Dosage: 1 DF, QD
     Route: 048

REACTIONS (8)
  - BRONCHITIS ACUTE [None]
  - CLOSTRIDIUM COLITIS [None]
  - DEHYDRATION [None]
  - DIARRHOEA [None]
  - HAEMATOCHEZIA [None]
  - HYPOKALAEMIA [None]
  - HYPONATRAEMIA [None]
  - RENAL FAILURE ACUTE [None]
